FAERS Safety Report 16894733 (Version 1)
Quarter: 2019Q4

REPORT INFORMATION
  Report Type: Spontaneous
  Country: US (occurrence: US)
  Receive Date: 20191007
  Receipt Date: 20191007
  Transmission Date: 20200122
  Serious: Yes (Hospitalization)
  Sender: FDA-Public Use
  Company Number: None

PATIENT
  Age: 73 Year
  Sex: Female
  Weight: 77.7 kg

DRUGS (4)
  1. APIXABAN [Concomitant]
     Active Substance: APIXABAN
     Dates: end: 20191006
  2. CLOPIDOGREL [Suspect]
     Active Substance: CLOPIDOGREL BISULFATE
  3. APIXABAN [Suspect]
     Active Substance: APIXABAN
     Indication: DEEP VEIN THROMBOSIS
     Route: 048
     Dates: end: 20191006
  4. ASPIRIN. [Suspect]
     Active Substance: ASPIRIN

REACTIONS (1)
  - Faeces discoloured [None]

NARRATIVE: CASE EVENT DATE: 20191006
